FAERS Safety Report 9848704 (Version 3)
Quarter: 2014Q1

REPORT INFORMATION
  Report Type: Spontaneous
  Country: US (occurrence: US)
  Receive Date: 20140128
  Receipt Date: 20140328
  Transmission Date: 20141002
  Serious: No
  Sender: FDA-Public Use
  Company Number: US-TEVA-458596USA

PATIENT
  Age: 27 Year
  Sex: Female
  Weight: 65.83 kg

DRUGS (3)
  1. PARAGARD 380A [Suspect]
     Indication: CONTRACEPTION
     Route: 015
     Dates: start: 20140123, end: 20140123
  2. WELLBUTRIN [Concomitant]
     Indication: BIPOLAR DISORDER
  3. SPIRONOLACTONE [Concomitant]
     Indication: HIRSUTISM

REACTIONS (4)
  - Dizziness [Recovered/Resolved]
  - Muscle spasms [Recovered/Resolved]
  - Metrorrhagia [Recovered/Resolved]
  - Complication of device insertion [Recovered/Resolved]
